FAERS Safety Report 5321989-2 (Version None)
Quarter: 2007Q2

REPORT INFORMATION
  Report Type: 
  Country: None (occurrence: None)
  Receive Date: 20070511
  Receipt Date: 20070503
  Transmission Date: 20071010
  Serious: Yes (Other)
  Sender: FDA-Public Use
  Company Number: PHHO2007GB04133

PATIENT
  Age: 12 Year
  Sex: Female
  Weight: 36 kg

DRUGS (1)
  1. EXJADE [Suspect]
     Indication: BLOOD IRON INCREASED
     Dosage: 750 MG, QD
     Route: 048
     Dates: start: 20060622, end: 20070301

REACTIONS (5)
  - HETEROPHORIA [None]
  - RETINAL DEGENERATION [None]
  - RETINAL PIGMENTATION [None]
  - RETINOPATHY [None]
  - VISUAL DISTURBANCE [None]
